FAERS Safety Report 4517999-5 (Version None)
Quarter: 2004Q4

REPORT INFORMATION
  Report Type: 
  Country: None (occurrence: None)
  Receive Date: 20041203
  Receipt Date: 20040807
  Transmission Date: 20050328
  Serious: Yes (Life-Threatening, Hospitalization)
  Sender: FDA-Public Use
  Company Number: FR-BRISTOL-MYERS SQUIBB COMPANY-12665915

PATIENT
  Age: 13 Year
  Sex: Male
  Weight: 65 kg

DRUGS (5)
  1. KENACORT [Suspect]
     Indication: ASTHMA
     Route: 030
     Dates: start: 20040807, end: 20040807
  2. KENACORT [Suspect]
     Indication: NOCTURNAL DYSPNOEA
     Route: 030
     Dates: start: 20040807, end: 20040807
  3. KENACORT [Suspect]
     Indication: RHINITIS ALLERGIC
     Route: 030
     Dates: start: 20040807, end: 20040807
  4. VENTOLIN [Concomitant]
     Dosage: DURATION OF THERAPY:  MORE THAN 6 YEARS
  5. BECOTIDE [Concomitant]
     Dosage: DURATION OF THERAPY:  MORE THAN 6 YEARS

REACTIONS (4)
  - ANAPHYLACTIC SHOCK [None]
  - CARDIAC ARREST [None]
  - CARDIO-RESPIRATORY ARREST [None]
  - RESPIRATORY ARREST [None]
